FAERS Safety Report 5713231-5 (Version None)
Quarter: 2008Q2

REPORT INFORMATION
  Report Type: 
  Country: None (occurrence: None)
  Receive Date: 20080422
  Receipt Date: 19981221
  Transmission Date: 20081010
  Serious: Yes (Death)
  Sender: FDA-Public Use
  Company Number: DE-ROCHE-111116

PATIENT
  Sex: Female
  Weight: 56 kg

DRUGS (6)
  1. TORSEMIDE [Suspect]
     Route: 048
     Dates: start: 19980721, end: 19980912
  2. TRIAZID [Concomitant]
     Dates: start: 19970201
  3. TRIAZID [Concomitant]
     Dates: start: 19970201
  4. CAPTO [Concomitant]
     Dates: start: 19960301
  5. ISMO [Concomitant]
     Dates: start: 19950401
  6. ATENOLOL [Concomitant]
     Dates: start: 19940301

REACTIONS (1)
  - DEATH [None]
